FAERS Safety Report 17703079 (Version 2)
Quarter: 2020Q2

REPORT INFORMATION
  Report Type: Report from Study
  Country: US (occurrence: US)
  Receive Date: 20200424
  Receipt Date: 20200525
  Transmission Date: 20200714
  Serious: Yes (Other)
  Sender: FDA-Public Use
  Company Number: US-SA-2019SA117211

PATIENT
  Age: 33 Year
  Sex: Female

DRUGS (1)
  1. ALEMTUZUMAB [Suspect]
     Active Substance: ALEMTUZUMAB
     Indication: MULTIPLE SCLEROSIS
     Dosage: 12 MG, QD
     Route: 041
     Dates: start: 20190422, end: 20190426

REACTIONS (8)
  - Dry throat [Not Recovered/Not Resolved]
  - Retinal artery occlusion [Recovered/Resolved]
  - Cough [Not Recovered/Not Resolved]
  - Visual field defect [Not Recovered/Not Resolved]
  - Anxiety [Unknown]
  - Nervousness [Unknown]
  - Heart rate abnormal [Unknown]
  - Oropharyngeal pain [Unknown]

NARRATIVE: CASE EVENT DATE: 201904
